FAERS Safety Report 7105613-4 (Version None)
Quarter: 2010Q4

REPORT INFORMATION
  Report Type: 
  Country: None (occurrence: None)
  Receive Date: 20101110
  Receipt Date: 20101025
  Transmission Date: 20110411
  Serious: Yes (Hospitalization, Disabling)
  Sender: FDA-Public Use
  Company Number: 2008PV000032

PATIENT
  Age: 56 Year
  Sex: Female

DRUGS (6)
  1. DEPOCYT [Suspect]
     Indication: CENTRAL NERVOUS SYSTEM LYMPHOMA
     Dosage: 50 MG;Q3W;INTH
     Route: 037
     Dates: start: 20070301
  2. DEXAMETHASONE [Concomitant]
  3. ESOMEPRAZOLE [Concomitant]
  4. HYDROCHLOROTHIAZIDE [Concomitant]
  5. TRIAMTEREN [Concomitant]
  6. SIMVASTATIN [Concomitant]

REACTIONS (6)
  - CAUDA EQUINA SYNDROME [None]
  - FAECAL INCONTINENCE [None]
  - GRAND MAL CONVULSION [None]
  - HYPOAESTHESIA [None]
  - RADICULITIS LUMBOSACRAL [None]
  - URINARY INCONTINENCE [None]
